FAERS Safety Report 21502590 (Version 6)
Quarter: 2023Q4

REPORT INFORMATION
  Report Type: Spontaneous
  Country: JP (occurrence: JP)
  Receive Date: 20221025
  Receipt Date: 20231207
  Transmission Date: 20240110
  Serious: Yes (Death, Hospitalization, Other)
  Sender: FDA-Public Use
  Company Number: JP-ASTELLAS-2022JP014045

PATIENT
  Age: 74 Year
  Sex: Male
  Weight: 48.7 kg

DRUGS (3)
  1. PADCEV [Suspect]
     Active Substance: ENFORTUMAB VEDOTIN-EJFV
     Indication: Bladder cancer
     Dosage: 60 MG, ONCE WEEKLY ADMINISTRATION 3 CONSECUTIVE AND 1 WEEK INTERRUPTED
     Route: 041
     Dates: start: 20220815, end: 20220829
  2. VEMLIDY [Concomitant]
     Active Substance: TENOFOVIR ALAFENAMIDE FUMARATE
     Indication: Hepatitis B
     Route: 048
     Dates: start: 20210729, end: 20220901
  3. KEYTRUDA [Concomitant]
     Active Substance: PEMBROLIZUMAB
     Indication: Bladder cancer
     Route: 042
     Dates: start: 20220602, end: 20220804

REACTIONS (9)
  - Myelosuppression [Fatal]
  - Pneumonia aspiration [Fatal]
  - Prerenal failure [Fatal]
  - Pyrexia [Unknown]
  - Platelet count decreased [Unknown]
  - Metastases to liver [Unknown]
  - Stevens-Johnson syndrome [Unknown]
  - Toxic epidermal necrolysis [Unknown]
  - Febrile neutropenia [Not Recovered/Not Resolved]

NARRATIVE: CASE EVENT DATE: 20220818
